FAERS Safety Report 5313878-4 (Version None)
Quarter: 2007Q2

REPORT INFORMATION
  Report Type: 
  Country: None (occurrence: None)
  Receive Date: 20070501
  Receipt Date: 20070417
  Transmission Date: 20071010
  Serious: Yes (Hospitalization)
  Sender: FDA-Public Use
  Company Number: JP-ROCHE-359175

PATIENT
  Age: 15 Year
  Sex: Male
  Weight: 63 kg

DRUGS (3)
  1. TAMIFLU [Suspect]
     Indication: INFLUENZA
     Route: 048
     Dates: start: 20040204, end: 20040204
  2. TAMIFLU [Suspect]
     Route: 048
     Dates: start: 20040205, end: 20040205
  3. TAMIFLU [Suspect]
     Route: 048
     Dates: start: 20040206, end: 20040206

REACTIONS (2)
  - DELUSION [None]
  - HALLUCINATION [None]
